FAERS Safety Report 13227844 (Version 1)
Quarter: 2017Q1

REPORT INFORMATION
  Report Type: Spontaneous
  Country: JP (occurrence: JP)
  Receive Date: 20170213
  Receipt Date: 20170213
  Transmission Date: 20170428
  Serious: Yes (Other)
  Sender: FDA-Public Use
  Company Number: JP-MYLANLABS-2017M1007468

PATIENT

DRUGS (2)
  1. ALENDRONATE [Suspect]
     Active Substance: ALENDRONATE SODIUM
     Indication: PRODUCT USED FOR UNKNOWN INDICATION
     Route: 048
  2. RINDERON                           /00008501/ [Suspect]
     Active Substance: BETAMETHASONE
     Indication: ASTHMA
     Route: 048

REACTIONS (6)
  - Gait disturbance [Recovering/Resolving]
  - Eye disorder [Unknown]
  - Rib fracture [Unknown]
  - Local swelling [Unknown]
  - Migraine [Unknown]
  - Syncope [Unknown]
